FAERS Safety Report 13407675 (Version 1)
Quarter: 2017Q2

REPORT INFORMATION
  Report Type: Spontaneous
  Country: US (occurrence: US)
  Receive Date: 20170406
  Receipt Date: 20170406
  Transmission Date: 20170830
  Serious: Yes (Hospitalization)
  Sender: FDA-Public Use
  Company Number: US-ASTRAZENECA-2017SE33561

PATIENT
  Age: 32 Year
  Sex: Male
  Weight: 117 kg

DRUGS (6)
  1. BABY ASPIRIN [Concomitant]
     Active Substance: ASPIRIN
     Indication: SUPPLEMENTATION THERAPY
     Route: 048
     Dates: start: 2014
  2. CLOTRIMAZOLE. [Concomitant]
     Active Substance: CLOTRIMAZOLE
     Indication: ORAL CANDIDIASIS
     Route: 048
     Dates: start: 201610
  3. ESOMEPRAZOLE MAGNESIUM. [Suspect]
     Active Substance: ESOMEPRAZOLE MAGNESIUM
     Indication: GASTROOESOPHAGEAL REFLUX DISEASE
     Route: 048
  4. CLOTRIMAZOLE. [Concomitant]
     Active Substance: CLOTRIMAZOLE
     Indication: STOMATITIS
     Dosage: AS REQUIRED
     Route: 061
     Dates: start: 2016
  5. BRILINTA [Suspect]
     Active Substance: TICAGRELOR
     Indication: STENT PLACEMENT
     Route: 048
     Dates: start: 20170201
  6. SIMVASTATIN. [Concomitant]
     Active Substance: SIMVASTATIN
     Indication: BLOOD CHOLESTEROL ABNORMAL
     Route: 048
     Dates: start: 2010

REACTIONS (31)
  - Glucose tolerance impaired [Unknown]
  - Tenosynovitis stenosans [Unknown]
  - Mechanical urticaria [Unknown]
  - Sleep apnoea syndrome [Unknown]
  - Tendon rupture [Unknown]
  - Intervertebral disc protrusion [Unknown]
  - Gluten sensitivity [Unknown]
  - Back pain [Unknown]
  - Dermatitis herpetiformis [Unknown]
  - Depression [Unknown]
  - Platelet count decreased [Unknown]
  - Acute myocardial infarction [Unknown]
  - Sacral radiculopathy [Unknown]
  - Haemoglobin decreased [Unknown]
  - Red blood cell count decreased [Unknown]
  - Haematocrit decreased [Unknown]
  - Attention deficit/hyperactivity disorder [Unknown]
  - Tachycardia [Unknown]
  - Pain in extremity [Unknown]
  - Pruritus [Unknown]
  - Tendonitis [Unknown]
  - Chronic sinusitis [Unknown]
  - Hypoxia [Unknown]
  - Dry mouth [Unknown]
  - Livedo reticularis [Unknown]
  - Hypertension [Unknown]
  - Intervertebral disc degeneration [Unknown]
  - Chest pain [Unknown]
  - Dry eye [Unknown]
  - Dermatitis contact [Unknown]
  - Obesity [Unknown]

NARRATIVE: CASE EVENT DATE: 1995
